FAERS Safety Report 8164519-2 (Version None)
Quarter: 2012Q1

REPORT INFORMATION
  Report Type: 
  Country: None (occurrence: None)
  Receive Date: 20120224
  Receipt Date: 20120215
  Transmission Date: 20120608
  Serious: Yes (Hospitalization)
  Sender: FDA-Public Use
  Company Number: US-ASTRAZENECA-2011SE78197

PATIENT
  Age: 78 Year
  Sex: Female
  Weight: 95.3 kg

DRUGS (11)
  1. TOPROL-XL [Suspect]
     Indication: HYPERTENSION
     Dosage: TAKING HALF THE DOSE
     Route: 048
  2. TOPROL-XL [Suspect]
     Route: 048
  3. TOPROL-XL [Suspect]
     Indication: ANGINA PECTORIS
     Dosage: TAKING HALF THE DOSE
     Route: 048
  4. TOPROL-XL [Suspect]
     Route: 048
  5. TOPROL-XL [Suspect]
     Route: 048
  6. TOPROL-XL [Suspect]
     Route: 048
  7. TOPROL-XL [Suspect]
     Route: 048
  8. TOPROL-XL [Suspect]
     Route: 048
  9. TOPROL-XL [Suspect]
     Route: 048
  10. NEXIUM [Suspect]
     Route: 048
  11. TOPROL-XL [Suspect]
     Route: 048

REACTIONS (5)
  - WEIGHT DECREASED [None]
  - HYPERTENSIVE EMERGENCY [None]
  - HYPERTENSION [None]
  - WRONG TECHNIQUE IN DRUG USAGE PROCESS [None]
  - CARDIAC DISORDER [None]
